FAERS Safety Report 5808583-1 (Version None)
Quarter: 2008Q3

REPORT INFORMATION
  Report Type: 
  Country: None (occurrence: None)
  Receive Date: 20080714
  Receipt Date: 20080708
  Transmission Date: 20090109
  Serious: Yes (Death)
  Sender: FDA-Public Use
  Company Number: FR-SANOFI-SYNTHELABO-A02200802117

PATIENT
  Sex: Female

DRUGS (6)
  1. ACETAMINOPHEN [Concomitant]
     Indication: INTENTIONAL OVERDOSE
     Route: 048
     Dates: start: 20080107, end: 20080107
  2. BUFLOMEDIL [Suspect]
     Indication: INTENTIONAL OVERDOSE
     Route: 048
     Dates: start: 20080107, end: 20080107
  3. URBANYL [Suspect]
     Indication: ANXIETY
     Route: 048
     Dates: start: 20080107, end: 20080107
  4. URBANYL [Suspect]
     Indication: INTENTIONAL OVERDOSE
     Route: 048
     Dates: start: 20080107, end: 20080107
  5. PLAQUENIL [Suspect]
     Indication: SJOGREN'S SYNDROME
     Route: 048
     Dates: start: 20080107, end: 20080107
  6. PLAQUENIL [Suspect]
     Indication: INTENTIONAL OVERDOSE
     Route: 048
     Dates: start: 20080107, end: 20080107

REACTIONS (2)
  - DEATH [None]
  - MULTIPLE DRUG OVERDOSE INTENTIONAL [None]
